FAERS Safety Report 25157407 (Version 2)
Quarter: 2025Q2

REPORT INFORMATION
  Report Type: Spontaneous
  Country: CA (occurrence: CA)
  Receive Date: 20250403
  Receipt Date: 20250530
  Transmission Date: 20250717
  Serious: Yes (Hospitalization, Other)
  Sender: PFIZER
  Company Number: CA-PFIZER INC-202500070795

PATIENT
  Age: 48 Year
  Sex: Female

DRUGS (4)
  1. RUXIENCE [Suspect]
     Active Substance: RITUXIMAB-PVVR
     Indication: Interstitial lung disease
     Dosage: 800 MG, WEEKLY, FOR 4 WEEKS
     Route: 042
     Dates: start: 20230120, end: 20230216
  2. RUXIENCE [Suspect]
     Active Substance: RITUXIMAB-PVVR
     Indication: Pulmonary haemorrhage
     Route: 042
     Dates: start: 20230828
  3. RUXIENCE [Suspect]
     Active Substance: RITUXIMAB-PVVR
     Route: 042
     Dates: start: 202409
  4. RUXIENCE [Suspect]
     Active Substance: RITUXIMAB-PVVR
     Route: 042
     Dates: start: 20250303

REACTIONS (8)
  - Haemoptysis [Unknown]
  - Pneumonia [Unknown]
  - Pain [Unknown]
  - Swelling [Unknown]
  - Hyperhidrosis [Unknown]
  - Cardiomegaly [Unknown]
  - Condition aggravated [Unknown]
  - Arthralgia [Unknown]

NARRATIVE: CASE EVENT DATE: 20230101
